FAERS Safety Report 10098136 (Version 2)
Quarter: 2014Q2

REPORT INFORMATION
  Report Type: Spontaneous
  Country: GB (occurrence: None)
  Receive Date: 20140421
  Receipt Date: 20140515
  Transmission Date: 20141212
  Serious: Yes (Other)
  Sender: FDA-Public Use
  Company Number: AUR-APL-2014-04571

PATIENT
  Age: 70 Year
  Sex: Male
  Weight: 79 kg

DRUGS (1)
  1. ALFUZOSIN [Suspect]
     Indication: BENIGN PROSTATIC HYPERPLASIA
     Dosage: 5 MG (2.5 MG,2 IN 1 D), ORAL
     Route: 048
     Dates: start: 20131214, end: 20140228

REACTIONS (9)
  - Tendonitis [None]
  - Bursitis [None]
  - Constipation [None]
  - Bone pain [None]
  - Vitreous detachment [None]
  - Limb discomfort [None]
  - Feeling abnormal [None]
  - Urticaria [None]
  - Eczema [None]
